FAERS Safety Report 18566706 (Version 2)
Quarter: 2020Q4

REPORT INFORMATION
  Report Type: Report from Study
  Country: US (occurrence: US)
  Receive Date: 20201201
  Receipt Date: 20201223
  Transmission Date: 20210114
  Serious: Yes (Hospitalization)
  Sender: FDA-Public Use
  Company Number: US-JNJFOC-20201135821

PATIENT
  Age: 47 Year
  Sex: Female

DRUGS (4)
  1. SELEXIPAG [Suspect]
     Active Substance: SELEXIPAG
     Indication: PULMONARY ARTERIAL HYPERTENSION
     Dosage: STRENGTH 200/800MC= 1000 MCG QAM
     Route: 048
     Dates: start: 202006
  2. SELEXIPAG [Suspect]
     Active Substance: SELEXIPAG
     Route: 048
     Dates: start: 20180525
  3. SELEXIPAG [Suspect]
     Active Substance: SELEXIPAG
     Dosage: STRENGTH 200/800MC= 1200 MCG QPM
     Route: 048
     Dates: start: 202006
  4. SELEXIPAG [Suspect]
     Active Substance: SELEXIPAG
     Route: 048
     Dates: start: 20180525

REACTIONS (4)
  - Surgery [Unknown]
  - Incorrect dose administered [Unknown]
  - Off label use [Unknown]
  - Hospitalisation [Unknown]

NARRATIVE: CASE EVENT DATE: 20180525
